FAERS Safety Report 5051705-3 (Version None)
Quarter: 2006Q3

REPORT INFORMATION
  Report Type: 
  Country: None (occurrence: None)
  Receive Date: 20060714
  Receipt Date: 20060705
  Transmission Date: 20061208
  Serious: Yes (Other)
  Sender: FDA-Public Use
  Company Number: PHFR2006GB02151

PATIENT
  Sex: Female

DRUGS (1)
  1. FEMARA [Suspect]
     Indication: BREAST CANCER

REACTIONS (4)
  - BREAST CANCER [None]
  - BREAST CANCER METASTATIC [None]
  - HAEMOGLOBIN DECREASED [None]
  - TUMOUR HAEMORRHAGE [None]
